FAERS Safety Report 7704416-7 (Version None)
Quarter: 2011Q3

REPORT INFORMATION
  Report Type: 
  Country: None (occurrence: None)
  Receive Date: 20110823
  Receipt Date: 20110816
  Transmission Date: 20111222
  Serious: Yes (Hospitalization, Other)
  Sender: FDA-Public Use
  Company Number: US-ALEXION PHARMACEUTICALS INC.-A201101035

PATIENT
  Sex: Female

DRUGS (6)
  1. FOLIC ACID [Concomitant]
     Dosage: UNK
  2. SOLIRIS [Suspect]
     Indication: PAROXYSMAL NOCTURNAL HAEMOGLOBINURIA
     Dosage: UNK
     Route: 042
  3. DANOCRINE [Concomitant]
     Dosage: UNK
  4. EPOGEN [Concomitant]
     Dosage: UNK, PRN
  5. NEULASTA [Concomitant]
     Dosage: UNK, Q4WK
  6. SYNTHROID [Concomitant]
     Dosage: UNK

REACTIONS (7)
  - HYDRONEPHROSIS [None]
  - ALANINE AMINOTRANSFERASE INCREASED [None]
  - URETERIC DILATATION [None]
  - ASPARTATE AMINOTRANSFERASE INCREASED [None]
  - CONDITION AGGRAVATED [None]
  - COLON CANCER [None]
  - ABDOMINAL HERNIA [None]
